FAERS Safety Report 13968233 (Version 1)
Quarter: 2017Q3

REPORT INFORMATION
  Report Type: Spontaneous
  Country: US (occurrence: US)
  Receive Date: 20170914
  Receipt Date: 20170914
  Transmission Date: 20171128
  Serious: Yes (Other)
  Sender: FDA-Public Use
  Company Number: US-JNJFOC-20170722722

PATIENT
  Age: 36 Year
  Sex: Female
  Weight: 65.05 kg

DRUGS (1)
  1. STELARA [Suspect]
     Active Substance: USTEKINUMAB
     Indication: PSORIASIS
     Route: 058
     Dates: start: 20110629, end: 20170504

REACTIONS (2)
  - Maternal exposure before pregnancy [Unknown]
  - Erythema [Unknown]

NARRATIVE: CASE EVENT DATE: 2017
